FAERS Safety Report 17904489 (Version 2)
Quarter: 2020Q3

REPORT INFORMATION
  Report Type: Report from Study
  Country: RU (occurrence: RU)
  Receive Date: 20200617
  Receipt Date: 20200713
  Transmission Date: 20201103
  Serious: Yes (Death, Other)
  Sender: FDA-Public Use
  Company Number: NVSC2020RU167585

PATIENT
  Age: 85 Year
  Sex: Male

DRUGS (1)
  1. ILARIS [Suspect]
     Active Substance: CANAKINUMAB
     Indication: COVID-19 PNEUMONIA
     Dosage: 300 MG
     Route: 065
     Dates: start: 20200506

REACTIONS (5)
  - Multiple organ dysfunction syndrome [Unknown]
  - Acute respiratory distress syndrome [Unknown]
  - Multi-organ disorder [Unknown]
  - Haemorrhagic pneumonia [Unknown]
  - COVID-19 [Fatal]

NARRATIVE: CASE EVENT DATE: 20200503
